FAERS Safety Report 8274671-6 (Version None)
Quarter: 2012Q2

REPORT INFORMATION
  Report Type: 
  Country: None (occurrence: None)
  Receive Date: 20120411
  Receipt Date: 20120404
  Transmission Date: 20120825
  Serious: Yes (Other)
  Sender: FDA-Public Use
  Company Number: JP-GLAXOSMITHKLINE-B0793969A

PATIENT
  Age: 71 Year
  Sex: Male

DRUGS (5)
  1. URIEF [Concomitant]
     Indication: BENIGN PROSTATIC HYPERPLASIA
     Dosage: 2IUAX PER DAY
     Route: 048
  2. FLUTICASONE PROPIONATE/SALMETEROL [Suspect]
     Indication: CHRONIC OBSTRUCTIVE PULMONARY DISEASE
     Dosage: 500MCG PER DAY
     Route: 055
     Dates: start: 20120301, end: 20120404
  3. PRORENAL [Concomitant]
     Indication: LUMBAR SPINAL STENOSIS
     Route: 048
  4. UNKNOWN MEDICATION [Concomitant]
     Indication: HYPERTENSION
     Dosage: 1IUAX PER DAY
     Route: 048
  5. SPIRIVA [Suspect]
     Indication: CHRONIC OBSTRUCTIVE PULMONARY DISEASE
     Dates: end: 20120404

REACTIONS (2)
  - CEREBRAL ARTERY EMBOLISM [None]
  - ATRIAL FIBRILLATION [None]
